FAERS Safety Report 7676921-3 (Version None)
Quarter: 2011Q3

REPORT INFORMATION
  Report Type: 
  Country: None (occurrence: None)
  Receive Date: 20110811
  Receipt Date: 20110808
  Transmission Date: 20111222
  Serious: Yes (Other)
  Sender: FDA-Public Use
  Company Number: US-AMGEN-USASP2011040166

PATIENT
  Age: 48 Year
  Sex: Female

DRUGS (3)
  1. NPLATE [Suspect]
     Indication: IDIOPATHIC THROMBOCYTOPENIC PURPURA
     Dates: start: 20110124, end: 20110214
  2. RITUXIMAB [Concomitant]
  3. ANTI D [Concomitant]

REACTIONS (5)
  - COLOSTOMY [None]
  - UROGENITAL FISTULA [None]
  - FEMALE GENITAL TRACT FISTULA [None]
  - ILEAL OPERATION [None]
  - CONTUSION [None]
